FAERS Safety Report 13858824 (Version 1)
Quarter: 2017Q3

REPORT INFORMATION
  Report Type: Report from Study
  Country: CN (occurrence: CN)
  Receive Date: 20170811
  Receipt Date: 20170811
  Transmission Date: 20171127
  Serious: Yes (Other)
  Sender: FDA-Public Use
  Company Number: CN-ROCHE-1921877

PATIENT
  Sex: Male
  Weight: 58 kg

DRUGS (1)
  1. AVASTIN [Suspect]
     Active Substance: BEVACIZUMAB
     Indication: ADENOCARCINOMA OF COLON
     Route: 041
     Dates: start: 20160503, end: 20170607

REACTIONS (4)
  - Renal hydrocele [Unknown]
  - Intestinal obstruction [Unknown]
  - Renal disorder [Unknown]
  - Pain [Unknown]
